FAERS Safety Report 18189587 (Version 1)
Quarter: 2020Q3

REPORT INFORMATION
  Report Type: Spontaneous
  Country: US (occurrence: US)
  Receive Date: 20200825
  Receipt Date: 20200825
  Transmission Date: 20201103
  Serious: No
  Sender: FDA-Public Use
  Company Number: US-SA-2020SA214167

PATIENT

DRUGS (1)
  1. ADMELOG [Suspect]
     Active Substance: INSULIN LISPRO
     Dosage: UNK UNK, QD
     Route: 065

REACTIONS (3)
  - Device operational issue [Unknown]
  - Visual impairment [Unknown]
  - Blood glucose decreased [Unknown]
